FAERS Safety Report 4815484-4 (Version None)
Quarter: 2005Q4

REPORT INFORMATION
  Report Type: 
  Country: None (occurrence: None)
  Receive Date: 20051028
  Receipt Date: 20051028
  Transmission Date: 20060501
  Serious: Yes (Hospitalization)
  Sender: FDA-Public Use
  Company Number: None

PATIENT
  Sex: Male
  Weight: 55.5656 kg

DRUGS (6)
  1. THALIDOMIDE 50 MG CELGENE [Suspect]
     Indication: NON-SMALL CELL LUNG CANCER METASTATIC
     Dosage: 200 MG DAILY OTHER
     Dates: start: 20040301, end: 20040322
  2. ALBUTEROL [Concomitant]
  3. ASPIRIN [Concomitant]
  4. GLIPIZIDE [Concomitant]
  5. IRINOTECAN [Concomitant]
  6. GEMCITABINE [Concomitant]

REACTIONS (7)
  - ASTHMA [None]
  - DEEP VEIN THROMBOSIS [None]
  - DYSPNOEA [None]
  - FATIGUE [None]
  - HAEMOPTYSIS [None]
  - INGUINAL MASS [None]
  - ULCER [None]
